FAERS Safety Report 8309819 (Version 3)
Quarter: 2013Q3

REPORT INFORMATION
  Report Type: Report from Study
  Country: JP (occurrence: JP)
  Receive Date: 20111223
  Receipt Date: 20130814
  Transmission Date: 20140515
  Serious: Yes (Death, Disabling, Other)
  Sender: FDA-Public Use
  Company Number: JP-GENZYME-THYM-1003013

PATIENT
  Age: 57 Year
  Sex: Female
  Weight: 47 kg

DRUGS (40)
  1. THYMOGLOBULIN [Suspect]
     Indication: APLASTIC ANAEMIA
     Dosage: 175 MG, QD
     Route: 042
     Dates: start: 20110208, end: 20110212
  2. ROXATIDINE ACETATE HYDROCHLORIDE [Concomitant]
     Indication: PROPHYLAXIS AGAINST GASTROINTESTINAL ULCER
     Dosage: UNK
     Route: 065
     Dates: start: 20110207, end: 20110320
  3. ITRACONAZOLE [Concomitant]
     Indication: ANTIFUNGAL PROPHYLAXIS
     Dosage: UNK
     Route: 065
     Dates: start: 20110208, end: 20110529
  4. TEPRENONE [Concomitant]
     Indication: GASTRITIS PROPHYLAXIS
     Dosage: UNK
     Route: 065
     Dates: start: 20110208, end: 20110212
  5. PREDNISOLONE [Concomitant]
     Indication: APLASTIC ANAEMIA
     Dosage: UNK
     Route: 065
     Dates: start: 20110201, end: 20110208
  6. PREDNISOLONE [Concomitant]
     Dosage: UNK
     Route: 065
     Dates: start: 20110222, end: 20110617
  7. PREDNISOLONE [Concomitant]
     Dosage: UNK
     Route: 065
     Dates: start: 20110213, end: 20110228
  8. PREDNISOLONE [Concomitant]
     Dosage: UNK
     Route: 065
     Dates: start: 20110301, end: 20110307
  9. PREDNISOLONE [Concomitant]
     Dosage: UNK
     Route: 065
     Dates: start: 20110627, end: 20110731
  10. CICLOSPORIN [Concomitant]
     Indication: APLASTIC ANAEMIA
     Dosage: UNK
     Route: 065
     Dates: start: 20110201, end: 20110614
  11. CICLOSPORIN [Concomitant]
     Dosage: UNK
     Route: 065
     Dates: start: 20110627, end: 20110710
  12. CICLOSPORIN [Concomitant]
     Dosage: UNK
     Route: 065
     Dates: start: 20100906
  13. FAMOTIDINE [Concomitant]
     Indication: PROPHYLAXIS AGAINST GASTROINTESTINAL ULCER
     Dosage: UNK
     Route: 065
     Dates: start: 20110320, end: 20110612
  14. FAMOTIDINE [Concomitant]
     Dosage: UNK
     Dates: start: 20110613, end: 20110731
  15. VALACICLOVIR HYDROCHLORIDE [Concomitant]
     Indication: INFECTION PROPHYLAXIS
     Dosage: UNK
     Route: 065
     Dates: start: 20110208, end: 20110529
  16. FEXOFENADINE HYDROCHLORIDE [Concomitant]
     Indication: PROPHYLAXIS
     Dosage: UNK
     Route: 065
     Dates: start: 20110530, end: 20110612
  17. OSELTAMIVIR PHOSPHATE [Concomitant]
     Indication: INFECTION PROPHYLAXIS
     Dosage: UNK
     Route: 065
     Dates: start: 20110207, end: 20110211
  18. ACETAMINOPHEN [Concomitant]
     Indication: PREMEDICATION
     Dosage: UNK
     Route: 065
     Dates: start: 20110208, end: 20110212
  19. CARBAZOCHROME SODIUM SULFONATE [Concomitant]
     Indication: APLASTIC ANAEMIA
     Dosage: UNK
     Route: 065
     Dates: start: 20110201, end: 20110731
  20. NIFEDIPINE [Concomitant]
     Indication: PROPHYLAXIS
     Dosage: UNK
     Route: 065
     Dates: start: 20110220, end: 20110220
  21. RISEDRONATE SODIUM [Concomitant]
     Indication: OSTEOPOROSIS PROPHYLAXIS
     Dosage: UNK
     Route: 065
     Dates: start: 20110205, end: 20110722
  22. LOXOPROFEN SODIUM [Concomitant]
     Indication: PROPHYLAXIS
     Dosage: UNK
     Route: 065
     Dates: start: 20110216, end: 20110217
  23. LOXOPROFEN SODIUM [Concomitant]
     Dosage: UNK
     Route: 065
     Dates: start: 20110726, end: 20110802
  24. LOXOPROFEN SODIUM [Concomitant]
     Dosage: UNK
     Route: 065
     Dates: start: 20110804, end: 20110806
  25. DEFERASIROX [Concomitant]
     Indication: IRON OVERLOAD
     Dosage: UNK
     Route: 065
     Dates: start: 20110530, end: 20110605
  26. DEFERASIROX [Concomitant]
     Dosage: UNK
     Route: 065
     Dates: start: 20110613, end: 20110731
  27. LEVOFLOXACIN [Concomitant]
     Indication: INFECTION PROPHYLAXIS
     Dosage: UNK
     Route: 065
     Dates: start: 20110208, end: 20110325
  28. LEVOFLOXACIN [Concomitant]
     Dosage: UNK
     Route: 065
     Dates: start: 20110331, end: 20110406
  29. LEVOFLOXACIN [Concomitant]
     Dosage: UNK
     Route: 065
     Dates: start: 20110414, end: 20110415
  30. LEVOFLOXACIN [Concomitant]
     Dosage: UNK
     Route: 065
     Dates: start: 20110418, end: 20110423
  31. DIPHENHYDRAMINE HYDROCHLORIDE [Concomitant]
     Indication: PREMEDICATION
     Dosage: UNK
     Route: 065
     Dates: start: 20110208, end: 20110212
  32. ASCORBIC ACID W [Concomitant]
     Indication: APLASTIC ANAEMIA
     Dosage: UNK
     Route: 065
     Dates: start: 20110201, end: 20110731
  33. SENNOSIDE [Concomitant]
     Indication: CONSTIPATION
     Dosage: UNK
     Route: 065
     Dates: start: 20110211, end: 20110212
  34. SENNOSIDE [Concomitant]
     Dosage: UNK
     Route: 065
     Dates: start: 20110223, end: 20110223
  35. SENNOSIDE [Concomitant]
     Dosage: UNK
     Route: 065
     Dates: start: 20110225, end: 20110225
  36. SENNOSIDE [Concomitant]
     Dosage: UNK
     Route: 065
     Dates: start: 20110317, end: 20110317
  37. REBAMIPIDE [Concomitant]
     Indication: GASTRITIS PROPHYLAXIS
     Dosage: UNK
     Route: 065
     Dates: start: 20110201, end: 20110320
  38. VITAMIN A [Concomitant]
     Indication: PROPHYLAXIS
     Dosage: UNK
     Route: 065
     Dates: start: 20110305, end: 20110305
  39. LIDOCAINE [Concomitant]
     Indication: PAIN PROPHYLAXIS
     Dosage: UNK
     Route: 065
     Dates: start: 20110202, end: 20110202
  40. LIDOCAINE [Concomitant]
     Dosage: UNK
     Route: 065
     Dates: start: 20110211, end: 20110211

REACTIONS (6)
  - Arthralgia [Not Recovered/Not Resolved]
  - Cerebral haemorrhage [Recovered/Resolved]
  - Periorbital haematoma [Recovered/Resolved]
  - Cytomegalovirus chorioretinitis [Fatal]
  - Pneumonia [Fatal]
  - Constipation [Recovered/Resolved]
